FAERS Safety Report 14967296 (Version 1)
Quarter: 2018Q2

REPORT INFORMATION
  Report Type: Spontaneous
  Country: US (occurrence: US)
  Receive Date: 20180604
  Receipt Date: 20180604
  Transmission Date: 20180711
  Serious: Yes (Life-Threatening, Other)
  Sender: FDA-Public Use
  Company Number: US-CHEPLA-C20170292

PATIENT
  Age: 72 Year
  Sex: Female

DRUGS (3)
  1. IDARUBICIN [Suspect]
     Active Substance: IDARUBICIN
  2. DEXAMETHASONE. [Suspect]
     Active Substance: DEXAMETHASONE
  3. TRETINOIN. [Suspect]
     Active Substance: TRETINOIN
     Indication: ACUTE PROMYELOCYTIC LEUKAEMIA

REACTIONS (4)
  - Acute myocardial infarction [Unknown]
  - Ischaemic stroke [Unknown]
  - Lung consolidation [Unknown]
  - Respiratory failure [Unknown]
